FAERS Safety Report 5955080-9 (Version None)
Quarter: 2008Q4

REPORT INFORMATION
  Report Type: 
  Country: None (occurrence: None)
  Receive Date: 20081117
  Receipt Date: 20081112
  Transmission Date: 20090506
  Serious: Yes (Hospitalization)
  Sender: FDA-Public Use
  Company Number: B0546177A

PATIENT
  Age: 27 Year
  Sex: Male

DRUGS (3)
  1. AMOXICILLIN [Suspect]
     Indication: TONSILLITIS
     Dosage: 1G TWICE PER DAY
     Route: 048
     Dates: start: 20080828, end: 20080906
  2. ADVIL [Suspect]
     Indication: TONSILLITIS
     Dosage: 400MG PER DAY
     Route: 048
     Dates: start: 20080830, end: 20080903
  3. SURGAM [Suspect]
     Dosage: 200MG UNKNOWN
     Route: 048
     Dates: start: 20080903, end: 20080906

REACTIONS (3)
  - NEUTROPENIA [None]
  - PARAESTHESIA [None]
  - PYREXIA [None]
